FAERS Safety Report 23245292 (Version 1)
Quarter: 2023Q4

REPORT INFORMATION
  Report Type: Spontaneous
  Country: BE (occurrence: BE)
  Receive Date: 20231130
  Receipt Date: 20231130
  Transmission Date: 20240110
  Serious: Yes (Other)
  Sender: FDA-Public Use
  Company Number: BE-BRISTOL-MYERS SQUIBB COMPANY-2023-170814

PATIENT
  Age: 80 Year

DRUGS (2)
  1. OPDIVO [Suspect]
     Active Substance: NIVOLUMAB
     Indication: Epithelioid mesothelioma
     Dosage: DOSE : UNAVAILABLE;     FREQ : UNAVAILABLE
     Dates: start: 202210
  2. YERVOY [Suspect]
     Active Substance: IPILIMUMAB
     Indication: Epithelioid mesothelioma
     Dates: start: 202210

REACTIONS (9)
  - Pruritus [Unknown]
  - Urticaria [Unknown]
  - Cholangitis [Unknown]
  - Diarrhoea [Unknown]
  - Pain [Unknown]
  - Weight increased [Unknown]
  - Endocarditis [Unknown]
  - Polymyalgia rheumatica [Unknown]
  - Off label use [Unknown]

NARRATIVE: CASE EVENT DATE: 20230701
